FAERS Safety Report 17769186 (Version 3)
Quarter: 2020Q4

REPORT INFORMATION
  Report Type: Spontaneous
  Country: US (occurrence: US)
  Receive Date: 20200512
  Receipt Date: 20201221
  Transmission Date: 20210113
  Serious: Yes (Other)
  Sender: FDA-Public Use
  Company Number: US-SA-2020SA119512

PATIENT

DRUGS (1)
  1. ZANTAC 150 (RANITIDINE HYDROCHLORIDE) [Suspect]
     Active Substance: RANITIDINE HYDROCHLORIDE
     Indication: DYSPEPSIA
     Dosage: UNK, QD (150-300MG OF ZANTAC DAILYFOR DECADES)
     Dates: start: 198901, end: 201512

REACTIONS (14)
  - Back disorder [Unknown]
  - Head and neck cancer [Unknown]
  - Pain in extremity [Recovered/Resolved]
  - Neoplasm malignant [Unknown]
  - Anxiety [Unknown]
  - Musculoskeletal pain [Unknown]
  - Arthralgia [Recovering/Resolving]
  - Colon cancer stage IV [Unknown]
  - Renal cancer stage IV [Unknown]
  - Condition aggravated [Recovered/Resolved]
  - Back pain [Unknown]
  - Weight decreased [Unknown]
  - Hepatic cancer stage IV [Unknown]
  - Asthenia [Unknown]

NARRATIVE: CASE EVENT DATE: 2019
